FAERS Safety Report 17090477 (Version 1)
Quarter: 2019Q4

REPORT INFORMATION
  Report Type: Report from Study
  Country: FR (occurrence: FR)
  Receive Date: 20191129
  Receipt Date: 20191129
  Transmission Date: 20200122
  Serious: Yes (Other)
  Sender: FDA-Public Use
  Company Number: FR-ACCORD-162017

PATIENT
  Age: 40 Year
  Sex: Female

DRUGS (6)
  1. KETOCONAZOLE. [Interacting]
     Active Substance: KETOCONAZOLE
     Indication: PRODUCT USED FOR UNKNOWN INDICATION
     Dosage: TREATMENT DISCONTINUED DUE TO PROGRESSIVE DISEASE
     Route: 065
  2. CISPLATIN. [Concomitant]
     Active Substance: CISPLATIN
     Indication: ADRENOCORTICAL CARCINOMA
     Dosage: 2 CYCLES,  TREATMENT DISCONTINUED DUE TO PROGRESSIVE DISEASE
     Route: 042
  3. ETOPOSIDE. [Interacting]
     Active Substance: ETOPOSIDE
     Indication: ADRENOCORTICAL CARCINOMA
     Dosage: TREATMENT DISCONTINUED DUE TO PROGRESSIVE DISEASE, 200 MG/M2 DAILY
     Route: 042
  4. MITOTANE [Interacting]
     Active Substance: MITOTANE
     Indication: ADRENOCORTICAL CARCINOMA
     Dosage: DURING CYCLE 1/ INITIAL DOSE,  JUNE 1966 (CHILE) EU BIRTH DATE: 28 APRIL 2004/
  5. ETOPOSIDE. [Suspect]
     Active Substance: ETOPOSIDE
     Indication: ADRENOCORTICAL CARCINOMA
     Dosage: DAY 1-2-3 AT CYCLE 1,PLATINUM ETOPOSIDE (150-200MG/M*2) INTRAVENOUSLY FOR?2 CYCLES
     Route: 042
  6. MITOTANE [Interacting]
     Active Substance: MITOTANE
     Indication: ADRENOCORTICAL CARCINOMA
     Dosage: DURING CYCLE 2/ ON ESCALATED DOSE,TREATMENT DISCONTINUED DUE TO PROGRESSIVE DISEASE

REACTIONS (4)
  - Drug interaction [Unknown]
  - Drug clearance decreased [Unknown]
  - Drug clearance increased [Unknown]
  - Disease progression [Unknown]
